FAERS Safety Report 6298793-4 (Version None)
Quarter: 2009Q3

REPORT INFORMATION
  Report Type: 
  Country: None (occurrence: None)
  Receive Date: 20090805
  Receipt Date: 20090805
  Transmission Date: 20100115
  Serious: Yes (Other)
  Sender: FDA-Public Use
  Company Number: None

PATIENT
  Sex: Female
  Weight: 62.5964 kg

DRUGS (1)
  1. METOPROLOL TARTRATE [Suspect]
     Indication: HYPERTENSION
     Dosage: 50 MG DAILY MOUTH
     Route: 048
     Dates: start: 20080101, end: 20081101

REACTIONS (8)
  - BLOOD PRESSURE INCREASED [None]
  - EYELID MARGIN CRUSTING [None]
  - FATIGUE [None]
  - FEELING COLD [None]
  - HYPOAESTHESIA [None]
  - LACRIMATION INCREASED [None]
  - RASH [None]
  - TREATMENT FAILURE [None]
